FAERS Safety Report 8572137-7 (Version None)
Quarter: 2012Q3

REPORT INFORMATION
  Report Type: 
  Country: None (occurrence: None)
  Receive Date: 20120806
  Receipt Date: 20120802
  Transmission Date: 20120928
  Serious: Yes (Death, Hospitalization)
  Sender: FDA-Public Use
  Company Number: JP-B.I. PHARMACEUTICALS,INC./RIDGEFIELD-2012-BP-16520NB

PATIENT
  Age: 62 Year
  Sex: Male
  Weight: 110 kg

DRUGS (6)
  1. DIOVAN [Concomitant]
     Indication: HYPERTENSION
     Dosage: 160 MG
     Route: 048
  2. PRADAXA [Suspect]
     Indication: ATRIAL FIBRILLATION
     Dosage: 300 MG
     Route: 048
     Dates: start: 20110101
  3. ARTIST [Concomitant]
     Indication: HYPERTENSION
     Dosage: 20 MG
     Route: 048
  4. DOXAZOSIN MESYLATE [Concomitant]
     Indication: HYPERTENSION
     Dosage: 2 MG
     Route: 048
  5. CALBLOCK [Concomitant]
     Indication: HYPERTENSION
     Dosage: 16 MG
     Route: 048
  6. BEPRICOR [Concomitant]
     Indication: ATRIAL FIBRILLATION
     Dosage: 200 MG
     Route: 065

REACTIONS (3)
  - SHOCK HAEMORRHAGIC [None]
  - PROCEDURAL HAEMORRHAGE [None]
  - AORTIC DISSECTION [None]
